FAERS Safety Report 17252585 (Version 1)
Quarter: 2019Q4

REPORT INFORMATION
  Report Type: Spontaneous
  Country: US (occurrence: US)
  Receive Date: 20191216
  Receipt Date: 20191216
  Transmission Date: 20200122
  Serious: Yes (Hospitalization)
  Sender: FDA-Public Use
  Company Number: None

PATIENT
  Sex: Female

DRUGS (5)
  1. POTASSIUM [Concomitant]
     Active Substance: POTASSIUM
  2. RASAGILINE. [Concomitant]
     Active Substance: RASAGILINE
  3. LUPRON DEPOT [Suspect]
     Active Substance: LEUPROLIDE ACETATE
     Indication: UTERINE LEIOMYOMA
     Dosage: ?          OTHER FREQUENCY:Q3MTHS;?
     Route: 030
  4. PLAVIX [Concomitant]
     Active Substance: CLOPIDOGREL BISULFATE
  5. METOPROL TAR [Concomitant]

REACTIONS (5)
  - Uterine prolapse repair [None]
  - Product use issue [None]
  - Dizziness [None]
  - Anaemia [None]
  - Haemorrhage [None]
